FAERS Safety Report 7014012-5 (Version None)
Quarter: 2010Q3

REPORT INFORMATION
  Report Type: 
  Country: None (occurrence: None)
  Receive Date: 20100927
  Receipt Date: 20100916
  Transmission Date: 20110219
  Serious: Yes (Death, Hospitalization)
  Sender: FDA-Public Use
  Company Number: US-BIOGENIDEC-2010BI023045

PATIENT
  Age: 55 Year
  Sex: Female

DRUGS (35)
  1. TYSABRI [Suspect]
     Indication: MULTIPLE SCLEROSIS
     Route: 042
     Dates: start: 20081027, end: 20100625
  2. ALLERCLEAR [Concomitant]
  3. LASIX [Concomitant]
  4. PROVIGIL [Concomitant]
  5. PROVIGIL [Concomitant]
  6. CYMBALTA [Concomitant]
  7. PREMARIN [Concomitant]
  8. POTASSIUM CHLORIDE [Concomitant]
  9. ARICEPT [Concomitant]
  10. ARICEPT [Concomitant]
  11. OXYBUTYNIN [Concomitant]
  12. OXYBUTYNIN [Concomitant]
  13. PROZAC [Concomitant]
  14. IBUPROFEN [Concomitant]
  15. PANTOPRAZOLE [Concomitant]
  16. GLUCOSAMINE [Concomitant]
  17. B-50 FORMULA [Concomitant]
  18. CALCIUM [Concomitant]
  19. VITAMIN D [Concomitant]
  20. IMITREX [Concomitant]
     Indication: MIGRAINE
  21. ACETAMINOPHEN/BUTALBITAL [Concomitant]
     Indication: TENSION HEADACHE
  22. FLEXERIL [Concomitant]
     Indication: MUSCLE SPASMS
  23. FLEXERIL [Concomitant]
  24. DESIPRAMINE HCL [Concomitant]
     Indication: INSOMNIA
  25. BACLOFEN [Concomitant]
     Indication: MUSCLE SPASMS
  26. PROMETHAZINE [Concomitant]
     Indication: NAUSEA
  27. ACETAMINOPHEN AND HYDROCODONE BITARTRATE [Concomitant]
     Indication: BACK PAIN
  28. NEURONTIN [Concomitant]
     Indication: PAIN IN EXTREMITY
  29. ZOLPIDEM [Concomitant]
  30. CRANBERRY TABLETS [Concomitant]
  31. MAGNESIUM [Concomitant]
  32. VITAMIN B COMPLEX CAP [Concomitant]
  33. FRENLIN [Concomitant]
  34. FIORINAL [Concomitant]
  35. XANAX [Concomitant]

REACTIONS (6)
  - ABDOMINAL SEPSIS [None]
  - CONVULSION [None]
  - HEPATIC FAILURE [None]
  - INTESTINAL ISCHAEMIA [None]
  - LACTIC ACIDOSIS [None]
  - PNEUMONIA ASPIRATION [None]
